FAERS Safety Report 16872372 (Version 4)
Quarter: 2020Q2

REPORT INFORMATION
  Report Type: Report from Study
  Country: CO (occurrence: CO)
  Receive Date: 20191001
  Receipt Date: 20200622
  Transmission Date: 20200713
  Serious: Yes (Hospitalization, Other)
  Sender: FDA-Public Use
  Company Number: CO-ACTELION-A-CH2019-193176

PATIENT
  Age: 60 Year
  Sex: Female
  Weight: 60 kg

DRUGS (4)
  1. RIOCIGUAT. [Concomitant]
     Active Substance: RIOCIGUAT
     Dosage: 2.5 MG, TID
     Route: 048
     Dates: start: 2015
  2. OPSUMIT [Suspect]
     Active Substance: MACITENTAN
     Indication: PULMONARY ARTERIAL HYPERTENSION
     Dosage: 10 MG, QD
     Route: 048
     Dates: start: 20190725, end: 20191020
  3. OPSUMIT [Suspect]
     Active Substance: MACITENTAN
     Dosage: 10 MG, QD
     Route: 048
     Dates: start: 20200115
  4. OPSUMIT [Suspect]
     Active Substance: MACITENTAN
     Dosage: 10 MG, QD
     Route: 048
     Dates: start: 20190619, end: 20190720

REACTIONS (17)
  - Pain [Recovering/Resolving]
  - Chest discomfort [Not Recovered/Not Resolved]
  - Hepatomegaly [Not Recovered/Not Resolved]
  - Influenza [Not Recovered/Not Resolved]
  - Leukaemia [Not Recovered/Not Resolved]
  - White blood cell count increased [Recovering/Resolving]
  - Abdominal pain upper [Not Recovered/Not Resolved]
  - Abdominal distension [Not Recovered/Not Resolved]
  - Pulmonary congestion [Not Recovered/Not Resolved]
  - Malaise [Recovering/Resolving]
  - Choking sensation [Not Recovered/Not Resolved]
  - Limb discomfort [Not Recovered/Not Resolved]
  - Gastrointestinal disorder [Recovering/Resolving]
  - Productive cough [Not Recovered/Not Resolved]
  - Viral infection [Recovering/Resolving]
  - Biopsy [Unknown]
  - Diarrhoea [Not Recovered/Not Resolved]

NARRATIVE: CASE EVENT DATE: 2019
